FAERS Safety Report 6057693-5 (Version None)
Quarter: 2009Q1

REPORT INFORMATION
  Report Type: 
  Country: None (occurrence: None)
  Receive Date: 20090129
  Receipt Date: 20090123
  Transmission Date: 20090719
  Serious: Yes (Hospitalization)
  Sender: FDA-Public Use
  Company Number: US-KINGPHARMUSA00001-K200900073

PATIENT
  Sex: Female

DRUGS (4)
  1. CORGARD [Suspect]
     Dosage: 20 MG DAILY
     Route: 048
  2. CORGARD [Suspect]
     Dosage: 40 MG DAILY
     Route: 048
  3. UNSPECIFIED WATER PILL [Concomitant]
     Dosage: UNK
  4. UNSPECIFIED PILL FOR HYPOTHYROIDISM [Concomitant]
     Indication: HYPOTHYROIDISM
     Dosage: UNK

REACTIONS (3)
  - BLOOD PRESSURE INCREASED [None]
  - NERVOUSNESS [None]
  - PANIC ATTACK [None]
